FAERS Safety Report 9094131 (Version 1)
Quarter: 2013Q1

REPORT INFORMATION
  Report Type: Spontaneous
  Country: US (occurrence: None)
  Receive Date: 20130122
  Receipt Date: 20130122
  Transmission Date: 20140127
  Serious: Yes (Death)
  Sender: FDA-Public Use
  Company Number: 2013POI058000044

PATIENT
  Age: 56 Year
  Sex: Male

DRUGS (6)
  1. OXYCODONE HCL [Suspect]
     Dates: start: 2011
  2. COCAINE [Suspect]
     Dates: start: 2011
  3. OLANZAPINE [Suspect]
     Dates: start: 2011
  4. TRAZODONE [Suspect]
     Dates: start: 2011
  5. PAROXETINE [Suspect]
     Dates: start: 2011
  6. SKELETAL MUSCLE RELAXANT [Suspect]
     Dates: start: 2011

REACTIONS (3)
  - Cardiac arrest [None]
  - Respiratory arrest [None]
  - Unevaluable event [None]
